FAERS Safety Report 4987592-9 (Version None)
Quarter: 2006Q2

REPORT INFORMATION
  Report Type: 
  Country: None (occurrence: None)
  Receive Date: 20060501
  Receipt Date: 20060405
  Transmission Date: 20061013
  Serious: Yes (Death, Other)
  Sender: FDA-Public Use
  Company Number: GB-NOVOPROD-252250

PATIENT
  Age: 14 Year
  Sex: Male

DRUGS (1)
  1. NOVOSEVEN [Suspect]
     Indication: POST PROCEDURAL HAEMORRHAGE

REACTIONS (5)
  - ARTERIAL THROMBOSIS LIMB [None]
  - CARDIAC FAILURE [None]
  - CARDIAC FUNCTION DISTURBANCE POSTOPERATIVE [None]
  - PERIPHERAL ISCHAEMIA [None]
  - SUBCLAVIAN ARTERY THROMBOSIS [None]
